FAERS Safety Report 13926347 (Version 3)
Quarter: 2017Q3

REPORT INFORMATION
  Report Type: Spontaneous
  Country: US (occurrence: US)
  Receive Date: 20170831
  Receipt Date: 20170906
  Transmission Date: 20171127
  Serious: Yes (Death)
  Sender: FDA-Public Use
  Company Number: US-PFIZER INC-2017377021

PATIENT
  Age: 37 Year
  Sex: Male

DRUGS (1)
  1. ZOLOFT [Suspect]
     Active Substance: SERTRALINE HYDROCHLORIDE
     Indication: INSOMNIA
     Dosage: UNK
     Dates: start: 2003

REACTIONS (12)
  - Anxiety [Unknown]
  - Irritability [Unknown]
  - Crying [Unknown]
  - Agitation [Unknown]
  - Night sweats [Unknown]
  - Tremor [Unknown]
  - Restlessness [Unknown]
  - Feeling abnormal [Unknown]
  - Completed suicide [Fatal]
  - Diarrhoea [Unknown]
  - Condition aggravated [Unknown]
  - Akathisia [Unknown]

NARRATIVE: CASE EVENT DATE: 2003
